FAERS Safety Report 19644377 (Version 1)
Quarter: 2021Q3

REPORT INFORMATION
  Report Type: Spontaneous
  Country: CZ (occurrence: CZ)
  Receive Date: 20210801
  Receipt Date: 20210801
  Transmission Date: 20211014
  Serious: Yes (Other)
  Sender: FDA-Public Use
  Company Number: CZ-BRACCO-2021CZ03159

PATIENT
  Age: 68 Year
  Sex: Male

DRUGS (3)
  1. TRIMECAINE [Concomitant]
     Active Substance: TRIMECAINE
     Indication: LOCAL ANAESTHESIA
     Dosage: 10 ML
     Route: 065
  2. COTRIMOXAZOLE [Concomitant]
     Active Substance: SULFAMETHOXAZOLE\TRIMETHOPRIM
     Indication: PROPHYLAXIS
     Dosage: 960 MG, BID, 3?4 DOSES ADMINISTERED EACH 12 HOURS STARTING IN THE MORNING ON THE DAY OF THE BIOPSY
     Route: 048
  3. GADOTERIDOL [Suspect]
     Active Substance: GADOTERIDOL
     Indication: MAGNETIC RESONANCE IMAGING
     Dosage: 15 ML, SINGLE
     Route: 065

REACTIONS (3)
  - Haematuria [Recovered/Resolved]
  - Pathogen resistance [Recovered/Resolved]
  - Pyrexia [Recovered/Resolved]
